FAERS Safety Report 5379942-9 (Version None)
Quarter: 2007Q3

REPORT INFORMATION
  Report Type: 
  Country: None (occurrence: None)
  Receive Date: 20070706
  Receipt Date: 20070626
  Transmission Date: 20080115
  Serious: Yes (Life-Threatening)
  Sender: FDA-Public Use
  Company Number: NL-NOVOPROD-264913

PATIENT
  Age: 60 Year
  Sex: Female
  Weight: 100 kg

DRUGS (16)
  1. NOVORAPID PENFILL [Suspect]
     Indication: TYPE 1 DIABETES MELLITUS
     Dosage: 16 IU, UNK
     Dates: start: 20070323
  2. HUMIRA [Suspect]
     Indication: RHEUMATOID ARTHRITIS
     Dosage: 40 MG, UNK
     Dates: start: 20061123
  3. INSULIN GLARGINE [Suspect]
     Indication: TYPE 1 DIABETES MELLITUS
     Dosage: 36 IU, QD
     Dates: start: 20060323
  4. FLIXOTIDE [Concomitant]
     Dosage: 200 UG, BID
     Route: 055
     Dates: start: 20070129
  5. COSOPT                             /01553801/ [Concomitant]
     Dosage: UNK, UNK
     Route: 031
     Dates: start: 20061027
  6. CELLUVISC                          /00007001/ [Concomitant]
     Route: 031
     Dates: start: 20060119
  7. TEARS PLUS                         /00880201/ [Concomitant]
     Route: 031
     Dates: start: 20060119
  8. METHOTREXATE [Concomitant]
     Dosage: 25 MG, QW
     Dates: start: 20051014
  9. DICLOFENAC [Concomitant]
     Dosage: 75 MG, BID
     Dates: start: 20050530
  10. FOLIC [Concomitant]
     Dosage: 5 MG, QW
     Dates: start: 20051014
  11. FOSAMAX [Concomitant]
     Dosage: 70 MG, QW
     Dates: start: 20050914
  12. ATENOLOL + CLORTALIDONA [Concomitant]
  13. THYRAX DUO [Concomitant]
     Dosage: .025 MG, BID
     Dates: start: 20050624
  14. OMEPRAZOLE [Concomitant]
     Dosage: 40 MG, QD
  15. METOCLOPRAMIDE [Concomitant]
     Dosage: 10 MG, QD
  16. ASCAL CARDIO [Concomitant]
     Dosage: 100 MG, QD

REACTIONS (2)
  - DRUG INTERACTION [None]
  - HYPOGLYCAEMIA [None]
